FAERS Safety Report 4371222-3 (Version None)
Quarter: 2004Q2

REPORT INFORMATION
  Report Type: 
  Country: None (occurrence: None)
  Receive Date: 20040604
  Receipt Date: 20040427
  Transmission Date: 20050107
  Serious: Yes (Other)
  Sender: FDA-Public Use
  Company Number: PHRM2004FR01695

PATIENT
  Age: 82 Year
  Sex: Male
  Weight: 60 kg

DRUGS (3)
  1. EXELON [Suspect]
     Indication: DEMENTIA ALZHEIMER'S TYPE
     Dosage: 4.5 MG, ONCE/SINGLE
     Route: 048
     Dates: start: 20031107, end: 20031107
  2. SERMION [Concomitant]
     Dosage: 10 MG, TID
     Route: 048
     Dates: start: 20021121
  3. KARDEGIC [Concomitant]
     Dosage: 75 MG, QD
     Route: 048
     Dates: start: 20021121

REACTIONS (3)
  - DEPRESSED LEVEL OF CONSCIOUSNESS [None]
  - LOSS OF CONSCIOUSNESS [None]
  - VOMITING [None]
